FAERS Safety Report 10953019 (Version 2)
Quarter: 2015Q2

REPORT INFORMATION
  Report Type: Spontaneous
  Country: JP (occurrence: JP)
  Receive Date: 20150325
  Receipt Date: 20150409
  Transmission Date: 20150821
  Serious: Yes (Other)
  Sender: FDA-Public Use
  Company Number: JP-PFIZER INC-2015097428

PATIENT
  Age: 45 Year
  Sex: Female

DRUGS (2)
  1. SALAZOPYRIN [Suspect]
     Active Substance: SULFASALAZINE
     Indication: PROCTITIS
     Dosage: UNK
     Dates: start: 200903, end: 200903
  2. SALAZOPYRIN [Suspect]
     Active Substance: SULFASALAZINE
     Indication: PROCTITIS
     Dosage: UNK
     Route: 048
     Dates: start: 200903, end: 200904

REACTIONS (3)
  - Erythema multiforme [Recovered/Resolved]
  - Lymphadenopathy [Unknown]
  - Pyrexia [Recovered/Resolved]

NARRATIVE: CASE EVENT DATE: 200903
